FAERS Safety Report 5699657-7 (Version None)
Quarter: 2008Q2

REPORT INFORMATION
  Report Type: 
  Country: None (occurrence: None)
  Receive Date: 20080410
  Receipt Date: 20080331
  Transmission Date: 20081010
  Serious: Yes (Hospitalization)
  Sender: FDA-Public Use
  Company Number: PHHO2007US01911

PATIENT
  Age: 58 Year
  Sex: Female

DRUGS (1)
  1. LIORESAL [Suspect]
     Indication: MUSCLE SPASTICITY
     Dosage: 0.1751MCG DAILY
     Route: 037
     Dates: start: 20060605

REACTIONS (3)
  - CATHETER RELATED COMPLICATION [None]
  - DRUG INEFFECTIVE [None]
  - HYPERTONIA [None]
